FAERS Safety Report 14409963 (Version 2)
Quarter: 2018Q2

REPORT INFORMATION
  Report Type: Spontaneous
  Country: US (occurrence: US)
  Receive Date: 20180119
  Receipt Date: 20180402
  Transmission Date: 20180711
  Serious: Yes (Other)
  Sender: FDA-Public Use
  Company Number: US-BAYER-2018-005427

PATIENT
  Age: 8 Year
  Sex: Male

DRUGS (1)
  1. KOGENATE FS [Suspect]
     Active Substance: ANTIHEMOPHILIC FACTOR, HUMAN RECOMBINANT
     Indication: FACTOR VIII DEFICIENCY
     Dosage: 1750 IU, TIW
     Route: 042
     Dates: start: 20171031

REACTIONS (3)
  - Traumatic haemorrhage [None]
  - Limb injury [None]
  - Treatment noncompliance [None]

NARRATIVE: CASE EVENT DATE: 20180107
